FAERS Safety Report 6269788-1 (Version None)
Quarter: 2009Q3

REPORT INFORMATION
  Report Type: 
  Country: None (occurrence: None)
  Receive Date: 20090716
  Receipt Date: 20090713
  Transmission Date: 20100115
  Serious: Yes (Death, Other)
  Sender: FDA-Public Use
  Company Number: US-ASTRAZENECA-2009UW12474

PATIENT
  Age: 76 Year
  Sex: Female

DRUGS (2)
  1. SEROQUEL [Suspect]
     Indication: SCHIZOPHRENIA
     Dosage: 100 MG TO 400 MG
     Route: 048
     Dates: start: 20000101, end: 20080616
  2. MELLARIL [Concomitant]
     Dates: start: 19500101, end: 19980101

REACTIONS (7)
  - CARDIAC MURMUR [None]
  - CEREBROVASCULAR ACCIDENT [None]
  - DEATH [None]
  - DECUBITUS ULCER [None]
  - OSTEOPOROSIS [None]
  - OVERDOSE [None]
  - TYPE 2 DIABETES MELLITUS [None]
